FAERS Safety Report 9283250 (Version 1)
Quarter: 2013Q2

REPORT INFORMATION
  Report Type: Spontaneous
  Country: US (occurrence: US)
  Receive Date: 20130510
  Receipt Date: 20130510
  Transmission Date: 20140414
  Serious: No
  Sender: FDA-Public Use
  Company Number: US-GLAXOSMITHKLINE-A0992620A

PATIENT
  Sex: Female

DRUGS (1)
  1. TYKERB [Suspect]
     Dates: start: 20120702, end: 20120823

REACTIONS (3)
  - Malaise [Unknown]
  - Diarrhoea [Unknown]
  - Urticaria [Unknown]
